FAERS Safety Report 9337796 (Version 2)
Quarter: 2013Q2

REPORT INFORMATION
  Report Type: Spontaneous
  Country: US (occurrence: US)
  Receive Date: 20130607
  Receipt Date: 20130613
  Transmission Date: 20140414
  Serious: Yes (Other)
  Sender: FDA-Public Use
  Company Number: US-ASTRAZENECA-2013SE40781

PATIENT
  Sex: Female

DRUGS (3)
  1. SEROQUEL XR [Suspect]
     Indication: ANXIETY
     Route: 048
     Dates: start: 2012
  2. SEROQUEL XR [Suspect]
     Indication: ANXIETY
     Route: 048
     Dates: start: 201304, end: 2013
  3. SEROQUEL XR [Suspect]
     Indication: ANXIETY
     Dosage: 50 MG, DAILY, GENERIC
     Route: 048
     Dates: start: 201305

REACTIONS (6)
  - Exposure during pregnancy [Unknown]
  - Stillbirth [Unknown]
  - Appetite disorder [Unknown]
  - Dyspepsia [Unknown]
  - Drug dose omission [Unknown]
  - Intentional drug misuse [Unknown]
